FAERS Safety Report 12073204 (Version 2)
Quarter: 2016Q2

REPORT INFORMATION
  Report Type: Spontaneous
  Country: US (occurrence: US)
  Receive Date: 20160212
  Receipt Date: 20160426
  Transmission Date: 20160815
  Serious: Yes (Other)
  Sender: FDA-Public Use
  Company Number: US-ROCHE-1710117

PATIENT
  Age: 50 Year
  Sex: Male
  Weight: 140 kg

DRUGS (26)
  1. ZELBORAF [Suspect]
     Active Substance: VEMURAFENIB
     Indication: METASTATIC MALIGNANT MELANOMA
     Route: 048
     Dates: start: 20160111, end: 20160123
  2. CLOTRIMAZOLE. [Concomitant]
     Active Substance: CLOTRIMAZOLE
     Route: 061
  3. COTELLIC [Suspect]
     Active Substance: COBIMETINIB
     Indication: METASTATIC MALIGNANT MELANOMA
     Route: 048
     Dates: start: 20160111, end: 20160123
  4. ALBUTEROL SULFATE. [Concomitant]
     Active Substance: ALBUTEROL SULFATE
     Route: 065
  5. SENNOSIDES. [Concomitant]
     Active Substance: SENNOSIDES
     Route: 048
  6. BENADRYL [Concomitant]
     Active Substance: DIPHENHYDRAMINE HYDROCHLORIDE
  7. ATORVASTATIN [Concomitant]
     Active Substance: ATORVASTATIN
     Route: 048
  8. DIPHENHYDRAMINE HCL [Concomitant]
     Active Substance: DIPHENHYDRAMINE HYDROCHLORIDE
     Dosage: 4 TO 6HOURS, TAKE 1-2 CAPSULES AS NEEDED
     Route: 048
  9. FAMOTIDINE. [Concomitant]
     Active Substance: FAMOTIDINE
     Route: 048
  10. FUROSEMIDE. [Concomitant]
     Active Substance: FUROSEMIDE
     Indication: PERIPHERAL SWELLING
  11. NEOMYCIN/POLYMYXIN/DEXAMETHASONE OPHTHALMIC [Concomitant]
     Dosage: 1 DROP EVERY EIGHT HOURS X2 WEEKS
     Route: 047
  12. TOBRAMYCIN AND DEXAMETHASONE [Concomitant]
     Active Substance: DEXAMETHASONE\TOBRAMYCIN
     Dosage: 1 DROP IN BOTH EYES THREE TIMES DAILY X2 WEEKS
     Route: 047
  13. ZYRTEC [Concomitant]
     Active Substance: CETIRIZINE HYDROCHLORIDE
  14. FAMOTIDINE. [Concomitant]
     Active Substance: FAMOTIDINE
  15. TRIAMCINOLONE ACETONIDE. [Concomitant]
     Active Substance: TRIAMCINOLONE ACETONIDE
     Dosage: UP TO TWICE DAILY AS NEEDED
     Route: 061
  16. ACETAMINOPHEN. [Concomitant]
     Active Substance: ACETAMINOPHEN
     Route: 048
  17. GABAPENTIN. [Concomitant]
     Active Substance: GABAPENTIN
     Route: 048
  18. METFORMIN [Concomitant]
     Active Substance: METFORMIN HYDROCHLORIDE
     Route: 048
  19. ZELBORAF [Suspect]
     Active Substance: VEMURAFENIB
     Route: 048
     Dates: start: 20160201, end: 20160208
  20. ZELBORAF [Suspect]
     Active Substance: VEMURAFENIB
     Route: 048
     Dates: start: 20160216
  21. CETIRIZINE [Concomitant]
     Active Substance: CETIRIZINE HYDROCHLORIDE
     Indication: HYPERSENSITIVITY
     Route: 048
  22. FUROSEMIDE. [Concomitant]
     Active Substance: FUROSEMIDE
     Indication: PERIPHERAL SWELLING
     Route: 048
  23. DOCUSATE SODIUM. [Concomitant]
     Active Substance: DOCUSATE SODIUM
     Route: 048
  24. INSULIN GLARGINE [Concomitant]
     Active Substance: INSULIN GLARGINE
     Dosage: DAILY AT BEDTIME 110 UNITS
     Route: 045
  25. ZINC OXIDE. [Concomitant]
     Active Substance: ZINC OXIDE
     Dosage: TWICE DAILY AS NEEDED
     Route: 061
  26. BENZOYL PEROXIDE. [Concomitant]
     Active Substance: BENZOYL PEROXIDE
     Route: 061

REACTIONS (9)
  - Ocular hyperaemia [Unknown]
  - Pain [Unknown]
  - Fluid retention [Unknown]
  - Oedema peripheral [Unknown]
  - Drug dose omission [Unknown]
  - Hypersensitivity [Unknown]
  - Somnolence [Unknown]
  - Rash [Recovering/Resolving]
  - Skin reaction [Unknown]

NARRATIVE: CASE EVENT DATE: 20160122
